FAERS Safety Report 15172363 (Version 2)
Quarter: 2018Q3

REPORT INFORMATION
  Report Type: Spontaneous
  Country: JP (occurrence: JP)
  Receive Date: 20180720
  Receipt Date: 20180917
  Transmission Date: 20181010
  Serious: Yes (Other)
  Sender: FDA-Public Use
  Company Number: JP-BRISTOL-MYERS SQUIBB COMPANY-BMS-2018-065963

PATIENT
  Age: 8 Decade
  Sex: Male

DRUGS (1)
  1. NIVOLUMAB [Suspect]
     Active Substance: NIVOLUMAB
     Indication: GASTRIC CANCER
     Dosage: 3 MG/KG, UNK
     Route: 065
     Dates: start: 201710

REACTIONS (2)
  - Stomatitis [Unknown]
  - Pemphigoid [Not Recovered/Not Resolved]

NARRATIVE: CASE EVENT DATE: 20180626
